FAERS Safety Report 9204717 (Version 1)
Quarter: 2013Q1

REPORT INFORMATION
  Report Type: Spontaneous
  Country: US (occurrence: None)
  Receive Date: 20130329
  Receipt Date: 20130329
  Transmission Date: 20140127
  Serious: Yes (Hospitalization, Other)
  Sender: FDA-Public Use
  Company Number: ADR-2013-00526

PATIENT
  Sex: Male

DRUGS (1)
  1. BACLOFEN INTRATHECAL [Suspect]
     Indication: MUSCLE SPASTICITY
     Dosage: 190

REACTIONS (8)
  - Pruritus [None]
  - Device expulsion [None]
  - Sepsis [None]
  - Fatigue [None]
  - Drug ineffective [None]
  - Athetosis [None]
  - Hypersensitivity [None]
  - Wound dehiscence [None]
